FAERS Safety Report 6727363-6 (Version None)
Quarter: 2010Q2

REPORT INFORMATION
  Report Type: 
  Country: None (occurrence: None)
  Receive Date: 20100517
  Receipt Date: 20100505
  Transmission Date: 20101027
  Serious: Yes (Other)
  Sender: FDA-Public Use
  Company Number: PHHY2010IT27779

PATIENT
  Sex: Male

DRUGS (2)
  1. ZOMETA [Suspect]
     Indication: METASTASES TO BONE
     Dosage: 4 MG/5 ML
     Route: 042
     Dates: start: 20090101, end: 20091031
  2. SUNITINIB MALATE [Concomitant]
     Indication: METASTASES TO BONE
     Dosage: UNK

REACTIONS (2)
  - OSTEONECROSIS OF JAW [None]
  - TOOTH EXTRACTION [None]
